FAERS Safety Report 4656171-5 (Version None)
Quarter: 2005Q2

REPORT INFORMATION
  Report Type: 
  Country: None (occurrence: None)
  Receive Date: 20050509
  Receipt Date: 20050427
  Transmission Date: 20051028
  Serious: Yes (Hospitalization)
  Sender: FDA-Public Use
  Company Number: AU-BRISTOL-MYERS SQUIBB COMPANY-12947479

PATIENT
  Age: 70 Year

DRUGS (3)
  1. TAXOL [Suspect]
     Indication: NON-SMALL CELL LUNG CANCER
     Route: 042
     Dates: end: 20050104
  2. CARBOPLATIN [Suspect]
     Indication: NON-SMALL CELL LUNG CANCER
     Route: 042
     Dates: end: 20050104
  3. RADIATION THERAPY [Suspect]
     Dates: end: 20050104

REACTIONS (3)
  - DEHYDRATION [None]
  - DELIRIUM [None]
  - PNEUMONIA [None]
